FAERS Safety Report 13743619 (Version 2)
Quarter: 2017Q4

REPORT INFORMATION
  Report Type: Spontaneous
  Country: TH (occurrence: TH)
  Receive Date: 20170711
  Receipt Date: 20171226
  Transmission Date: 20180320
  Serious: Yes (Other)
  Sender: FDA-Public Use
  Company Number: TH-BAUSCH-BL-2017-021022

PATIENT
  Age: 54 Year
  Sex: Female

DRUGS (1)
  1. DEXAMETHASONE. [Suspect]
     Active Substance: DEXAMETHASONE
     Indication: MESOTHERAPY
     Dosage: WEEKLY, TOTAL 36 MG
     Route: 058

REACTIONS (1)
  - Cushing^s syndrome [Recovered/Resolved]
